FAERS Safety Report 16625038 (Version 1)
Quarter: 2019Q3

REPORT INFORMATION
  Report Type: Spontaneous
  Country: TT (occurrence: TT)
  Receive Date: 20190724
  Receipt Date: 20190724
  Transmission Date: 20191004
  Serious: Yes (Hospitalization)
  Sender: FDA-Public Use
  Company Number: TT-UNICHEM PHARMACEUTICALS (USA) INC-UCM201907-000250

PATIENT
  Age: 49 Year
  Sex: Male

DRUGS (1)
  1. HYDROCHLOROTHIAZIDE. [Suspect]
     Active Substance: HYDROCHLOROTHIAZIDE
     Indication: HYPERTENSION

REACTIONS (2)
  - Hyponatraemia [Recovered/Resolved]
  - Electrocardiogram abnormal [Recovered/Resolved]
